FAERS Safety Report 5846733-1 (Version None)
Quarter: 2008Q3

REPORT INFORMATION
  Report Type: 
  Country: None (occurrence: None)
  Receive Date: 20080815
  Receipt Date: 20080804
  Transmission Date: 20090109
  Serious: Yes (Other)
  Sender: FDA-Public Use
  Company Number: FR-AVENTIS-200812911FR

PATIENT
  Age: 66 Year
  Sex: Female

DRUGS (2)
  1. TAXOTERE [Suspect]
     Indication: BREAST CANCER
     Route: 042
     Dates: start: 20080402, end: 20080604
  2. HERCEPTINE [Concomitant]
     Indication: BREAST CANCER
     Route: 042
     Dates: start: 20080402, end: 20080604

REACTIONS (2)
  - DISABILITY [None]
  - RADICULITIS BRACHIAL [None]
